FAERS Safety Report 10991931 (Version 1)
Quarter: 2015Q2

REPORT INFORMATION
  Report Type: Spontaneous
  Country: BR (occurrence: BR)
  Receive Date: 20150406
  Receipt Date: 20150406
  Transmission Date: 20150821
  Serious: Yes (Death, Hospitalization, Other)
  Sender: FDA-Public Use
  Company Number: BR-BAXTER-2015BAX016927

PATIENT
  Age: 9 Month
  Sex: Male

DRUGS (1)
  1. ADVATE [Suspect]
     Active Substance: ANTIHEMOPHILIC FACTOR, HUMAN RECOMBINANT
     Indication: PRODUCT USED FOR UNKNOWN INDICATION
     Route: 065
     Dates: start: 20150313

REACTIONS (8)
  - Pulmonary haemorrhage [Unknown]
  - Local swelling [Unknown]
  - Swelling face [Unknown]
  - Cardiac failure [Fatal]
  - Contusion [Unknown]
  - General physical health deterioration [Unknown]
  - Feeding disorder neonatal [Unknown]
  - Pain [Unknown]

NARRATIVE: CASE EVENT DATE: 20150313
